FAERS Safety Report 11109299 (Version 1)
Quarter: 2015Q2

REPORT INFORMATION
  Report Type: Report from Study
  Country: US (occurrence: US)
  Receive Date: 20150513
  Receipt Date: 20150513
  Transmission Date: 20150821
  Serious: No
  Sender: FDA-Public Use
  Company Number: US-AMGEN-USASL2015044433

PATIENT
  Age: 64 Year
  Sex: Female

DRUGS (2)
  1. ENBREL [Suspect]
     Active Substance: ETANERCEPT
     Indication: JUVENILE IDIOPATHIC ARTHRITIS
     Dosage: UNK
     Route: 065
     Dates: start: 2000, end: 2003
  2. ACTEMRA [Concomitant]
     Active Substance: TOCILIZUMAB
     Dosage: UNK

REACTIONS (7)
  - Drug effect decreased [Recovered/Resolved]
  - Feeling abnormal [Recovered/Resolved]
  - Blood test abnormal [Recovered/Resolved]
  - Sinusitis [Not Recovered/Not Resolved]
  - Arthritis [Recovered/Resolved]
  - Nasopharyngitis [Not Recovered/Not Resolved]
  - Inflammation [Recovered/Resolved]

NARRATIVE: CASE EVENT DATE: 201412
